FAERS Safety Report 18348637 (Version 1)
Quarter: 2020Q4

REPORT INFORMATION
  Report Type: Spontaneous
  Country: US (occurrence: US)
  Receive Date: 20201006
  Receipt Date: 20201006
  Transmission Date: 20210114
  Serious: No
  Sender: FDA-Public Use
  Company Number: None

PATIENT
  Age: 57 Year
  Sex: Female

DRUGS (3)
  1. KEVZARA [Suspect]
     Active Substance: SARILUMAB
     Indication: RHEUMATOID ARTHRITIS
     Dosage: ?          OTHER FREQUENCY:EVERY 2 WEEKS;?
  2. TYMLOS [Concomitant]
     Active Substance: ABALOPARATIDE
  3. METHOTREXATE. [Concomitant]
     Active Substance: METHOTREXATE

REACTIONS (5)
  - Musculoskeletal stiffness [None]
  - Drug ineffective [None]
  - Condition aggravated [None]
  - Pruritus [None]
  - Rash erythematous [None]

NARRATIVE: CASE EVENT DATE: 20201006
